FAERS Safety Report 25663145 (Version 1)
Quarter: 2025Q3

REPORT INFORMATION
  Report Type: Spontaneous
  Country: US (occurrence: US)
  Receive Date: 20250811
  Receipt Date: 20250811
  Transmission Date: 20251020
  Serious: No
  Sender: XELLIA PHARMACEUTICALS
  Company Number: US-Axellia-005319

PATIENT
  Age: 70 Year
  Sex: Male
  Weight: 45.4 kg

DRUGS (1)
  1. DAPTOMYCIN [Suspect]
     Active Substance: DAPTOMYCIN
     Indication: Product use in unapproved indication
     Route: 030
     Dates: start: 20240815

REACTIONS (1)
  - Product prescribing error [Unknown]
